FAERS Safety Report 10098993 (Version 1)
Quarter: 2014Q2

REPORT INFORMATION
  Report Type: Spontaneous
  Country: US (occurrence: US)
  Receive Date: 20140423
  Receipt Date: 20140423
  Transmission Date: 20141212
  Serious: Yes (Other)
  Sender: FDA-Public Use
  Company Number: US-BIOMARINAP-US-2014-103042

PATIENT
  Sex: Female
  Weight: 49.3 kg

DRUGS (2)
  1. KUVAN [Suspect]
     Indication: PHENYLKETONURIA
     Dosage: 1000 MG, QD
     Route: 048
     Dates: start: 20110926
  2. ADVAIR [Concomitant]
     Indication: ASTHMA
     Dosage: UNK, QD

REACTIONS (2)
  - Gastrooesophageal reflux disease [Unknown]
  - Tooth erosion [Unknown]
